FAERS Safety Report 9995471 (Version 1)
Quarter: 2014Q1

REPORT INFORMATION
  Report Type: Spontaneous
  Country: US (occurrence: US)
  Receive Date: 20140311
  Receipt Date: 20140311
  Transmission Date: 20141002
  Serious: Yes (Hospitalization)
  Sender: FDA-Public Use
  Company Number: US-PURDUE-USA-2014-0111751

PATIENT
  Sex: Female

DRUGS (2)
  1. HYDROMORPHONE HCL (SIMILAR TO 19-892) [Suspect]
     Indication: BACK PAIN
     Dosage: 4 MG, Q4- 6H
     Route: 048
  2. DIOVAN [Concomitant]
     Indication: BLOOD PRESSURE
     Dosage: 160 MG, DAILY
     Route: 048

REACTIONS (3)
  - Blood sodium decreased [Recovered/Resolved]
  - Hyperhidrosis [Recovered/Resolved]
  - Drug withdrawal syndrome [Unknown]
